FAERS Safety Report 5871276-9 (Version None)
Quarter: 2008Q3

REPORT INFORMATION
  Report Type: 
  Country: None (occurrence: None)
  Receive Date: 20080904
  Receipt Date: 20080904
  Transmission Date: 20090109
  Serious: Yes (Life-Threatening, Hospitalization)
  Sender: FDA-Public Use
  Company Number: None

PATIENT
  Age: 82 Year
  Sex: Female
  Weight: 66.2252 kg

DRUGS (1)
  1. DIGOXIN [Suspect]
     Indication: ATRIAL FIBRILLATION
     Dosage: 1 TABLET DAILY
     Dates: start: 20070402, end: 20071022

REACTIONS (6)
  - APPARENT DEATH [None]
  - ECONOMIC PROBLEM [None]
  - LOSS OF CONSCIOUSNESS [None]
  - MALAISE [None]
  - OVERDOSE [None]
  - PHARMACEUTICAL PRODUCT COMPLAINT [None]
